FAERS Safety Report 7304364-0 (Version None)
Quarter: 2011Q1

REPORT INFORMATION
  Report Type: 
  Country: None (occurrence: None)
  Receive Date: 20110221
  Receipt Date: 20110209
  Transmission Date: 20110831
  Serious: Yes (Other)
  Sender: FDA-Public Use
  Company Number: US-ELI_LILLY_AND_COMPANY-US200909000612

PATIENT
  Sex: Female

DRUGS (8)
  1. FORTEO [Suspect]
     Dosage: 20 UG, DAILY (1/D)
  2. VITAMIN D [Concomitant]
     Dosage: 500 IU, UNKNOWN
  3. FORTEO [Suspect]
     Dosage: 20 UG, DAILY (1/D)
  4. FORTEO [Suspect]
     Dosage: 20 UG, DAILY (1/D)
  5. CALCIUM [Concomitant]
     Dosage: 630 MG, UNK
  6. FORTEO [Suspect]
     Indication: OSTEOPOROSIS
     Dosage: 20 UG, DAILY (1/D)
     Dates: start: 20090501
  7. FORTEO [Suspect]
     Dosage: 20 UG, DAILY (1/D)
  8. CITRACAL + D [Concomitant]

REACTIONS (9)
  - BLOOD CALCIUM INCREASED [None]
  - MUSCLE SPASMS [None]
  - ANXIETY [None]
  - BACK PAIN [None]
  - BLADDER CANCER [None]
  - NECK PAIN [None]
  - BLOOD GLUCOSE INCREASED [None]
  - URINARY INCONTINENCE [None]
  - SPINAL FRACTURE [None]
